FAERS Safety Report 6831905-X (Version None)
Quarter: 2010Q3

REPORT INFORMATION
  Report Type: 
  Country: None (occurrence: None)
  Receive Date: 20100712
  Receipt Date: 20100706
  Transmission Date: 20110219
  Serious: Yes (Hospitalization)
  Sender: FDA-Public Use
  Company Number: US-MERCK-1007USA00575

PATIENT
  Age: 57 Year
  Sex: Female

DRUGS (2)
  1. IVEMEND [Suspect]
     Indication: PROPHYLAXIS OF NAUSEA AND VOMITING
     Route: 041
     Dates: start: 20100101, end: 20100706
  2. CARBOPLATIN AND DOCETAXEL AND TRASTUZUMAB [Concomitant]
     Route: 065

REACTIONS (1)
  - INFUSION SITE EXTRAVASATION [None]
